FAERS Safety Report 6643265-8 (Version None)
Quarter: 2010Q1

REPORT INFORMATION
  Report Type: 
  Country: None (occurrence: None)
  Receive Date: 20100319
  Receipt Date: 20100315
  Transmission Date: 20100710
  Serious: Yes (Hospitalization)
  Sender: FDA-Public Use
  Company Number: BE-ABBOTT-10P-013-0632375-00

PATIENT
  Sex: Male

DRUGS (3)
  1. LUCRIN DEPOT 11.25 MG [Suspect]
     Indication: PROSTATE CANCER
     Route: 058
     Dates: start: 20090909
  2. DAFALGAN [Concomitant]
     Indication: DRUG USE FOR UNKNOWN INDICATION
  3. DURAGESIC-100 [Concomitant]
     Indication: DRUG USE FOR UNKNOWN INDICATION

REACTIONS (4)
  - ABDOMINAL PAIN [None]
  - CHANGE OF BOWEL HABIT [None]
  - HYPOPHAGIA [None]
  - PAIN IN EXTREMITY [None]
